FAERS Safety Report 18073326 (Version 1)
Quarter: 2020Q3

REPORT INFORMATION
  Report Type: Spontaneous
  Country: NO (occurrence: NO)
  Receive Date: 20200727
  Receipt Date: 20200727
  Transmission Date: 20201103
  Serious: Yes (Hospitalization, Other)
  Sender: FDA-Public Use
  Company Number: NO-AMNEAL PHARMACEUTICALS-2020-AMRX-02073

PATIENT
  Age: 56 Year
  Sex: Female

DRUGS (1)
  1. ADRENACLICK [Suspect]
     Active Substance: EPINEPHRINE
     Indication: PRODUCT USED FOR UNKNOWN INDICATION
     Dosage: UNK
     Route: 042

REACTIONS (4)
  - Incorrect route of product administration [Unknown]
  - Tachycardia [Unknown]
  - Hypertension [Recovered/Resolved]
  - Seizure [Unknown]
